FAERS Safety Report 23964793 (Version 1)
Quarter: 2024Q2

REPORT INFORMATION
  Report Type: Spontaneous
  Country: US (occurrence: US)
  Receive Date: 20240612
  Receipt Date: 20240612
  Transmission Date: 20240716
  Serious: No
  Sender: FDA-Public Use
  Company Number: US-TEVA-VS-3202945

PATIENT
  Sex: Male

DRUGS (1)
  1. UZEDY [Suspect]
     Active Substance: RISPERIDONE
     Indication: Product used for unknown indication
     Route: 065

REACTIONS (7)
  - Vomiting [Unknown]
  - Lethargy [Unknown]
  - Dysarthria [Unknown]
  - Gait disturbance [Unknown]
  - Heart rate increased [Unknown]
  - Wrong patient received product [Unknown]
  - Blood pressure increased [Unknown]
